FAERS Safety Report 7927856-X (Version None)
Quarter: 2011Q4

REPORT INFORMATION
  Report Type: 
  Country: None (occurrence: None)
  Receive Date: 20111118
  Receipt Date: 20111118
  Transmission Date: 20120403
  Serious: No
  Sender: FDA-Public Use
  Company Number: None

PATIENT
  Age: 43 Year
  Sex: Male

DRUGS (1)
  1. VELCADE [Suspect]
     Indication: MULTIPLE MYELOMA
     Dosage: NOT PROVIDED
     Route: 042

REACTIONS (3)
  - ABDOMINAL DISCOMFORT [None]
  - NEUROPATHY PERIPHERAL [None]
  - HYPOPHAGIA [None]
